FAERS Safety Report 5689538-7 (Version None)
Quarter: 2008Q1

REPORT INFORMATION
  Report Type: 
  Country: None (occurrence: None)
  Receive Date: 20080331
  Receipt Date: 20080319
  Transmission Date: 20080703
  Serious: Yes (Other)
  Sender: FDA-Public Use
  Company Number: PFIZER INC-2008026542

PATIENT
  Sex: Female
  Weight: 42 kg

DRUGS (2)
  1. SU-011,248 [Suspect]
     Indication: ADENOCARCINOMA OF THE CERVIX
     Dosage: DAILY DOSE:50MG-FREQ:CYCLE 6 WEEKS: 50MG EVERY DAY FOR 4 WEEK
     Route: 048
  2. SU-011,248 [Suspect]
     Dosage: DAILY DOSE:37.5MG
     Route: 048

REACTIONS (1)
  - PERIORBITAL OEDEMA [None]
